FAERS Safety Report 5331862-1 (Version None)
Quarter: 2007Q2

REPORT INFORMATION
  Report Type: 
  Country: None (occurrence: None)
  Receive Date: 20070523
  Receipt Date: 20070511
  Transmission Date: 20071010
  Serious: Yes (Hospitalization)
  Sender: FDA-Public Use
  Company Number: US-JNJFOC-20070406374

PATIENT
  Age: 79 Year
  Sex: Female
  Weight: 68 kg

DRUGS (12)
  1. REOPRO [Suspect]
     Indication: DRUG USE FOR UNKNOWN INDICATION
  2. METHOTREXATE [Concomitant]
  3. ARTHROTEC [Concomitant]
  4. FOLIC ACID [Concomitant]
  5. CALCIUM CHLORIDE [Concomitant]
  6. VITAMINS NOS [Concomitant]
  7. GOLD [Concomitant]
  8. ASPIRIN [Concomitant]
  9. METOPROLOL SUCCINATE [Concomitant]
  10. NITROGLYCERIN [Concomitant]
  11. DIAZEPAM [Concomitant]
  12. FENTANYL [Concomitant]

REACTIONS (6)
  - ABDOMINAL PAIN LOWER [None]
  - ARTERIAL INJURY [None]
  - GROIN PAIN [None]
  - NAUSEA [None]
  - RETROPERITONEAL HAEMATOMA [None]
  - UNRESPONSIVE TO STIMULI [None]
